FAERS Safety Report 7407015-X (Version None)
Quarter: 2011Q2

REPORT INFORMATION
  Report Type: 
  Country: None (occurrence: None)
  Receive Date: 20110411
  Receipt Date: 20110405
  Transmission Date: 20111010
  Serious: No
  Sender: FDA-Public Use
  Company Number: US-PFIZER INC-2011075522

PATIENT
  Sex: Female
  Weight: 58.5 kg

DRUGS (3)
  1. SYNTHROID [Concomitant]
     Indication: HYPERTHYROIDISM
     Dosage: 100 UG, 1X/DAY
     Route: 048
  2. PREMPRO [Suspect]
     Indication: HORMONE REPLACEMENT THERAPY
     Dosage: 0.625 MG, 1X/DAY
     Route: 048
     Dates: start: 20110311, end: 20110312
  3. PREMPRO [Suspect]
     Indication: HOT FLUSH

REACTIONS (2)
  - DIARRHOEA [None]
  - MUSCLE SPASMS [None]
